FAERS Safety Report 7965074-X (Version None)
Quarter: 2011Q4

REPORT INFORMATION
  Report Type: 
  Country: None (occurrence: None)
  Receive Date: 20111206
  Receipt Date: 20111206
  Transmission Date: 20120403
  Serious: No
  Sender: FDA-Public Use
  Company Number: None

PATIENT

DRUGS (1)
  1. EFFEXOR XR [Suspect]
     Indication: DEPRESSION
     Dosage: 75MG ONE BID
     Dates: start: 20110317

REACTIONS (3)
  - DRUG INEFFECTIVE [None]
  - CONDITION AGGRAVATED [None]
  - DEPRESSION [None]
